FAERS Safety Report 7866518-4 (Version None)
Quarter: 2011Q4

REPORT INFORMATION
  Report Type: 
  Country: None (occurrence: None)
  Receive Date: 20111028
  Receipt Date: 20110628
  Transmission Date: 20120403
  Serious: No
  Sender: FDA-Public Use
  Company Number: US-GLAXOSMITHKLINE-A0933444A

PATIENT
  Sex: Female

DRUGS (7)
  1. VITAMIN TAB [Concomitant]
  2. ADVAIR DISKUS 100/50 [Suspect]
     Indication: ASTHMA
     Dosage: 1PUFF TWICE PER DAY
     Route: 055
     Dates: start: 20050101
  3. MINERAL TAB [Concomitant]
  4. OSTEOPOROSIS MEDICATION [Concomitant]
  5. GABAPENTIN [Concomitant]
  6. VENTOLIN HFA [Concomitant]
  7. ORENCIA [Concomitant]

REACTIONS (2)
  - APHONIA [None]
  - VOCAL CORD DISORDER [None]
